FAERS Safety Report 4746126-4 (Version None)
Quarter: 2005Q3

REPORT INFORMATION
  Report Type: 
  Country: None (occurrence: None)
  Receive Date: 20050816
  Receipt Date: 20050713
  Transmission Date: 20060218
  Serious: Yes (Life-Threatening, Hospitalization)
  Sender: FDA-Public Use
  Company Number: US-BRISTOL-MYERS SQUIBB COMPANY-13037833

PATIENT
  Age: 54 Year
  Sex: Female

DRUGS (7)
  1. ERBITUX [Suspect]
     Indication: COLORECTAL CANCER METASTATIC
     Dosage: PATIENT RECEIVED APPROXIMATELY 15 MINUTES OF CETUXIMAB
     Route: 042
     Dates: start: 20050712, end: 20050712
  2. DECADRON [Concomitant]
     Indication: PREMEDICATION
  3. BENADRYL [Concomitant]
     Indication: PREMEDICATION
  4. COMPAZINE [Concomitant]
  5. PERCOCET [Concomitant]
  6. VASOTEC RPD [Concomitant]
  7. TYLENOL (CAPLET) [Concomitant]

REACTIONS (7)
  - BLOOD CREATININE INCREASED [None]
  - BRADYCARDIA [None]
  - CARDIO-RESPIRATORY ARREST [None]
  - HYPOTENSION [None]
  - INFUSION RELATED REACTION [None]
  - SOMNOLENCE [None]
  - URINARY INCONTINENCE [None]
